FAERS Safety Report 7055809-5 (Version None)
Quarter: 2010Q4

REPORT INFORMATION
  Report Type: 
  Country: None (occurrence: None)
  Receive Date: 20101021
  Receipt Date: 20101012
  Transmission Date: 20110411
  Serious: Yes (Hospitalization)
  Sender: FDA-Public Use
  Company Number: JP-ASTRAZENECA-2010SE49377

PATIENT
  Age: 46 Year
  Sex: Male

DRUGS (4)
  1. SEROQUEL [Suspect]
     Route: 048
     Dates: start: 20100619, end: 20100710
  2. TEGRETOL [Concomitant]
     Route: 048
  3. RIVOTRIL [Concomitant]
     Route: 048
  4. VALERIN [Concomitant]
     Route: 048

REACTIONS (1)
  - DRUG ERUPTION [None]
